FAERS Safety Report 9787019 (Version 1)
Quarter: 2013Q4

REPORT INFORMATION
  Report Type: Spontaneous
  Country: GB (occurrence: GB)
  Receive Date: 20131227
  Receipt Date: 20131227
  Transmission Date: 20140711
  Serious: Yes (Hospitalization)
  Sender: FDA-Public Use
  Company Number: PHHY2013GB149880

PATIENT
  Age: 83 Year
  Sex: 0

DRUGS (10)
  1. OMEPRAZOLE [Suspect]
     Dosage: 40 MG, BID
     Route: 048
  2. CEFUROXIME [Suspect]
     Indication: ANTIBIOTIC PROPHYLAXIS
     Dosage: 1.5 G, UNK
     Route: 042
     Dates: start: 20111121, end: 20111121
  3. METRONIDAZOLE [Suspect]
     Indication: ANTIBIOTIC PROPHYLAXIS
     Dosage: 500 MG, UNK
     Route: 042
     Dates: start: 20111121, end: 20111121
  4. SENNA [Concomitant]
     Dosage: 2 DF, QD AT NIGHT
     Route: 048
  5. DIPYRIDAMOLE [Concomitant]
     Dosage: 200 MG, BID, MODIFIED RELEASE
     Route: 048
  6. CO-CODAMOL [Concomitant]
     Dosage: ONE OR TWO DOSES
     Route: 048
  7. ALFACALCIDOL [Concomitant]
     Dosage: 250 NG, QD
     Route: 048
  8. SIMVASTATIN [Concomitant]
     Dosage: 40 MG, QD AT NIGHT
     Route: 048
  9. ALENDRONIC ACID [Concomitant]
     Dosage: 70 MG, QW
     Route: 048
  10. TAZOCIN [Concomitant]
     Indication: PNEUMONIA
     Dosage: 4.5 G, TID
     Route: 042
     Dates: start: 20111003, end: 20111101

REACTIONS (1)
  - Clostridium difficile infection [Recovered/Resolved]
